FAERS Safety Report 14432757 (Version 1)
Quarter: 2018Q1

REPORT INFORMATION
  Report Type: Spontaneous
  Country: FR (occurrence: FR)
  Receive Date: 20180124
  Receipt Date: 20180124
  Transmission Date: 20180509
  Serious: Yes (Other)
  Sender: FDA-Public Use
  Company Number: FR-EAGLE PHARMACEUTICALS, INC.-FR-2018EAG000009

PATIENT
  Age: 46 Year
  Sex: Female

DRUGS (5)
  1. RADIOTHERAPY [Suspect]
     Active Substance: RADIATION THERAPY
     Indication: INVASIVE DUCTAL BREAST CARCINOMA
     Dosage: 50 GRAY IN TOTAL IN 25 SESSIONS AT THE TUMOR SITE
     Route: 065
  2. CYCLOPHOSPHAMIDE. [Suspect]
     Active Substance: CYCLOPHOSPHAMIDE
     Indication: INVASIVE DUCTAL BREAST CARCINOMA
     Dosage: 3 COURSES
     Route: 065
     Dates: start: 201005, end: 201009
  3. FLUOROURACIL 5 FU [Suspect]
     Active Substance: FLUOROURACIL
     Indication: INVASIVE DUCTAL BREAST CARCINOMA
     Dosage: 100 (UNSPECIFIED UNITS)
     Route: 065
     Dates: start: 201005, end: 201009
  4. DOCETAXEL. [Suspect]
     Active Substance: DOCETAXEL
     Indication: INVASIVE DUCTAL BREAST CARCINOMA
     Dosage: 100 (UNSPECIFIED UNITS) (3 COURSES)
     Route: 065
     Dates: start: 201005, end: 201009
  5. EPIRUBICIN [Suspect]
     Active Substance: EPIRUBICIN
     Indication: INVASIVE DUCTAL BREAST CARCINOMA
     Dosage: UNK
     Route: 065
     Dates: start: 201005, end: 201009

REACTIONS (1)
  - Sarcoidosis [Recovering/Resolving]
